FAERS Safety Report 18547730 (Version 1)
Quarter: 2020Q4

REPORT INFORMATION
  Report Type: Spontaneous
  Country: JP (occurrence: JP)
  Receive Date: 20201125
  Receipt Date: 20201125
  Transmission Date: 20210114
  Serious: Yes (Other)
  Sender: FDA-Public Use
  Company Number: JP-HQ SPECIALTY-JP-2020INT000132

PATIENT
  Age: 85 Year
  Sex: Female

DRUGS (5)
  1. DEXAMETHASONE. [Concomitant]
     Active Substance: DEXAMETHASONE
     Indication: METASTASES TO CENTRAL NERVOUS SYSTEM
     Dosage: UNK
     Route: 065
  2. GLYCEROL [Concomitant]
     Active Substance: GLYCERIN
     Indication: METASTASES TO CENTRAL NERVOUS SYSTEM
     Dosage: UNK
     Route: 065
  3. DEXAMETHASONE. [Concomitant]
     Active Substance: DEXAMETHASONE
     Indication: NON-SMALL CELL LUNG CANCER RECURRENT
  4. GLYCEROL [Concomitant]
     Active Substance: GLYCERIN
     Indication: NON-SMALL CELL LUNG CANCER RECURRENT
  5. LEVETIRACETAM. [Suspect]
     Active Substance: LEVETIRACETAM
     Indication: SEIZURE PROPHYLAXIS
     Dosage: UNK
     Route: 065

REACTIONS (1)
  - Interstitial lung disease [Recovered/Resolved]
